FAERS Safety Report 12174062 (Version 1)
Quarter: 2016Q1

REPORT INFORMATION
  Report Type: Spontaneous
  Country: US (occurrence: None)
  Receive Date: 20160311
  Receipt Date: 20160311
  Transmission Date: 20160526
  Serious: No
  Sender: FDA-Public Use
  Company Number: None

PATIENT
  Sex: Male

DRUGS (7)
  1. LOVASTATIN. [Suspect]
     Active Substance: LOVASTATIN
  2. TOUJEO [Concomitant]
     Active Substance: INSULIN GLARGINE
  3. LOVASTATIN. [Concomitant]
     Active Substance: LOVASTATIN
  4. GLIMIPERIDE [Suspect]
     Active Substance: GLIMEPIRIDE
  5. LISINOPRIL. [Concomitant]
     Active Substance: LISINOPRIL
  6. METFORMIN [Suspect]
     Active Substance: METFORMIN HYDROCHLORIDE
  7. LISINOPRIL. [Suspect]
     Active Substance: LISINOPRIL

REACTIONS (1)
  - Blood glucose decreased [None]
